FAERS Safety Report 16795497 (Version 1)
Quarter: 2019Q4

REPORT INFORMATION
  Report Type: Spontaneous
  Country: US (occurrence: US)
  Receive Date: 20190910
  Receipt Date: 20190910
  Transmission Date: 20200122
  Serious: Yes (Disabling, Other)
  Sender: FDA-Public Use
  Company Number: None

PATIENT
  Age: 34 Year
  Sex: Female
  Weight: 47.25 kg

DRUGS (8)
  1. LORTAB [Concomitant]
     Active Substance: ACETAMINOPHEN\HYDROCODONE BITARTRATE
  2. CIPROFLOXIN [Suspect]
     Active Substance: CIPROFLOXACIN
     Indication: KIDNEY INFECTION
     Dosage: ?          QUANTITY:1 CAPSULE(S);?
     Route: 048
  3. ADAVAN [Concomitant]
     Active Substance: UNSPECIFIED INGREDIENT
  4. CIPROFLOXIN [Suspect]
     Active Substance: CIPROFLOXACIN
     Indication: URINARY TRACT INFECTION
     Dosage: ?          QUANTITY:1 CAPSULE(S);?
     Route: 048
  5. ACETOMETAPHINE [Concomitant]
  6. AFTER MULTIVITAMINE FOR WOMEN [Concomitant]
  7. SUBUTEX [Concomitant]
     Active Substance: BUPRENORPHINE HYDROCHLORIDE
  8. PRENATAL VITAMINES [Concomitant]

REACTIONS (6)
  - Cognitive disorder [None]
  - Fatigue [None]
  - Anxiety [None]
  - Arthralgia [None]
  - Amnesia [None]
  - Loss of personal independence in daily activities [None]

NARRATIVE: CASE EVENT DATE: 20090714
